FAERS Safety Report 5003094-8 (Version None)
Quarter: 2006Q2

REPORT INFORMATION
  Report Type: 
  Country: None (occurrence: None)
  Receive Date: 20060516
  Receipt Date: 20060324
  Transmission Date: 20061013
  Serious: Yes (Hospitalization)
  Sender: FDA-Public Use
  Company Number: US-MERCK-0603USA04070

PATIENT
  Age: 55 Year
  Sex: Male
  Weight: 102 kg

DRUGS (2)
  1. VIOXX [Suspect]
     Indication: ARTHRALGIA
     Route: 048
     Dates: start: 20020221, end: 20021019
  2. LEXAPRO [Concomitant]
     Indication: DEPRESSION
     Route: 065
     Dates: start: 20021001

REACTIONS (6)
  - BASAL CELL CARCINOMA [None]
  - CEREBROVASCULAR ACCIDENT [None]
  - DEPRESSION [None]
  - ERECTILE DYSFUNCTION [None]
  - FATIGUE [None]
  - HYPERLIPIDAEMIA [None]
